FAERS Safety Report 6377143-9 (Version None)
Quarter: 2009Q3

REPORT INFORMATION
  Report Type: 
  Country: None (occurrence: None)
  Receive Date: 20090925
  Receipt Date: 20090915
  Transmission Date: 20100115
  Serious: Yes (Hospitalization, Disabling, Other)
  Sender: FDA-Public Use
  Company Number: GB-PFIZER INC-2009268639

PATIENT
  Age: 63 Year

DRUGS (14)
  1. METHOTREXATE SODIUM [Suspect]
  2. SULFASALAZINE [Suspect]
  3. ENBREL [Suspect]
     Indication: TUBERCULOSIS
     Dosage: 50 MG, WEEKLY
     Route: 058
     Dates: start: 20090406, end: 20090501
  4. CHOLESTYRAMINE RESIN [Concomitant]
     Indication: HYPERCHOLESTEROLAEMIA
     Dosage: 4 MG, 1X/DAY
     Route: 048
  5. CODEINE [Concomitant]
     Indication: PAIN
     Dosage: 30 MG, 4X/DAY
     Route: 048
  6. COTRIM [Concomitant]
     Indication: WHIPPLE'S DISEASE
     Dosage: UNK
     Dates: start: 20090713
  7. ETHAMBUTOL [Concomitant]
     Indication: TUBERCULOSIS
     Dosage: 1000 MG, 1X/DAY
     Route: 048
     Dates: start: 20090606, end: 20090626
  8. FLUOXETINE [Concomitant]
     Indication: DEPRESSION
     Dosage: 20 MG, 1X/DAY
     Route: 048
  9. MORPHINE SULFATE [Concomitant]
     Indication: PAIN
     Dosage: 40 MG, 2X/DAY
     Route: 048
  10. OMEPRAZOLE [Concomitant]
     Indication: DYSPEPSIA
     Dosage: 20 MG, 1X/DAY
     Route: 048
  11. PARACETAMOL [Concomitant]
     Indication: PAIN
     Dosage: 1 G, 1X/DAY
     Route: 048
  12. PYRIDOXINE [Concomitant]
     Indication: TUBERCULOSIS
     Dosage: 10 MG, 1X/DAY
     Dates: start: 20090606, end: 20090626
  13. RAMIPRIL [Concomitant]
     Indication: HYPERTENSION
     Dosage: 10 MG, 1X/DAY
     Route: 048
  14. RIFATER [Concomitant]
     Indication: TUBERCULOSIS
     Dosage: 2 DF, 1X/DAY
     Route: 048
     Dates: start: 20090606, end: 20090626

REACTIONS (8)
  - ANAEMIA [None]
  - BLOOD ALBUMIN DECREASED [None]
  - DIARRHOEA [None]
  - HYPERHIDROSIS [None]
  - LYMPHADENOPATHY [None]
  - PEPTIC ULCER [None]
  - PLEURAL EFFUSION [None]
  - WEIGHT DECREASED [None]
